FAERS Safety Report 4977002-X (Version None)
Quarter: 2006Q2

REPORT INFORMATION
  Report Type: 
  Country: None (occurrence: None)
  Receive Date: 20060412
  Receipt Date: 20060403
  Transmission Date: 20061013
  Serious: No
  Sender: FDA-Public Use
  Company Number: 06H-163-0307016-00

PATIENT
  Sex: 0

DRUGS (4)
  1. ETOPOSIDE [Suspect]
     Indication: CHEMOTHERAPY
     Dosage: 20 MG/M2, INFUSION
  2. CYTARABINE [Suspect]
     Indication: CHEMOTHERAPY
     Dosage: SEE IMAGE
  3. CYTARABINE [Suspect]
     Indication: CHEMOTHERAPY
     Dosage: SEE IMAGE
  4. CYTARABINE [Suspect]
     Indication: CHEMOTHERAPY
     Dosage: SEE IMAGE

REACTIONS (2)
  - BACTERIAL SEPSIS [None]
  - DRUG TOXICITY [None]
